FAERS Safety Report 10256694 (Version 1)
Quarter: 2014Q2

REPORT INFORMATION
  Report Type: Spontaneous
  Country: FR (occurrence: FR)
  Receive Date: 20140624
  Receipt Date: 20140624
  Transmission Date: 20141212
  Serious: Yes (Other)
  Sender: FDA-Public Use
  Company Number: FR-GILEAD-2014-0105745

PATIENT
  Age: 27 Year
  Sex: Male

DRUGS (5)
  1. TRUVADA [Suspect]
     Indication: ANTIVIRAL PROPHYLAXIS
     Dosage: 1 DF, QD
     Route: 048
     Dates: start: 20140515, end: 20140526
  2. PREZISTA [Suspect]
     Indication: ANTIVIRAL PROPHYLAXIS
     Dosage: 1 DF, QD
     Route: 048
     Dates: start: 20140515, end: 20140526
  3. NORVIR [Suspect]
     Indication: ANTIVIRAL PROPHYLAXIS
     Dosage: 1 DF, QD
     Route: 048
     Dates: start: 20140515, end: 20140526
  4. COMBIVIR [Concomitant]
     Indication: ANTIVIRAL PROPHYLAXIS
  5. KALETRA [Concomitant]

REACTIONS (4)
  - Conjunctivitis [Recovered/Resolved]
  - Rash generalised [Recovered/Resolved]
  - Eyelid oedema [Recovered/Resolved]
  - Off label use [Recovered/Resolved]
